FAERS Safety Report 21280922 (Version 2)
Quarter: 2022Q3

REPORT INFORMATION
  Report Type: Spontaneous
  Country: US (occurrence: US)
  Receive Date: 20220901
  Receipt Date: 20220907
  Transmission Date: 20221026
  Serious: No
  Sender: FDA-Public Use
  Company Number: US-PFIZER INC-PV202200054290

PATIENT
  Age: 44 Year
  Sex: Female
  Weight: 52.154 kg

DRUGS (2)
  1. PREMARIN [Suspect]
     Active Substance: ESTROGENS, CONJUGATED
     Indication: Osteoporosis prophylaxis
     Dosage: 0.625 MG/ 1 PER DAY
     Dates: start: 1986
  2. PREMARIN [Suspect]
     Active Substance: ESTROGENS, CONJUGATED
     Indication: Incontinence

REACTIONS (5)
  - Insomnia [Unknown]
  - Product coating issue [Unknown]
  - Fall [Unknown]
  - Off label use [Unknown]
  - Wrong technique in product usage process [Unknown]

NARRATIVE: CASE EVENT DATE: 19860501
